FAERS Safety Report 20647617 (Version 7)
Quarter: 2023Q2

REPORT INFORMATION
  Report Type: Spontaneous
  Country: FR (occurrence: FR)
  Receive Date: 20220329
  Receipt Date: 20230420
  Transmission Date: 20230721
  Serious: Yes (Hospitalization, Other)
  Sender: FDA-Public Use
  Company Number: FR-Accord-258765

PATIENT
  Age: 76 Year
  Sex: Male
  Weight: 92 kg

DRUGS (33)
  1. GEMCITABINE HYDROCHLORIDE [Suspect]
     Active Substance: GEMCITABINE HYDROCHLORIDE
     Indication: Diffuse large B-cell lymphoma stage IV
     Dosage: 1Q2W
     Route: 042
     Dates: start: 20220225
  2. OXALIPLATIN [Suspect]
     Active Substance: OXALIPLATIN
     Indication: Diffuse large B-cell lymphoma stage IV
     Dosage: 1Q2W
     Route: 042
     Dates: start: 20220225
  3. RITUXIMAB [Suspect]
     Active Substance: RITUXIMAB
     Indication: Diffuse large B-cell lymphoma stage IV
     Dosage: 1Q2W
     Route: 042
     Dates: start: 20220224
  4. ALPRAZOLAM [Concomitant]
     Active Substance: ALPRAZOLAM
     Dates: start: 20220223
  5. APREPITANT [Concomitant]
     Active Substance: APREPITANT
     Dates: start: 20220225, end: 20220225
  6. NEFOPAM [Concomitant]
     Active Substance: NEFOPAM
     Dates: start: 20220223
  7. ONDANSETRON [Concomitant]
     Active Substance: ONDANSETRON
     Dates: start: 20220225
  8. ZOPICLONE [Concomitant]
     Active Substance: ZOPICLONE
     Dates: start: 20220223
  9. ALFUZOSIN HYDROCHLORIDE [Concomitant]
     Active Substance: ALFUZOSIN HYDROCHLORIDE
     Dates: start: 20220223
  10. ATOVAQUONE [Concomitant]
     Active Substance: ATOVAQUONE
     Dates: start: 20220223
  11. CARTEOL [Concomitant]
     Dates: start: 2010
  12. FILGRASTIM [Concomitant]
     Active Substance: FILGRASTIM
     Dates: start: 20220226, end: 20220319
  13. FUROSEMIDE [Concomitant]
     Active Substance: FUROSEMIDE
     Dates: start: 20220224
  14. IRBESARTAN [Concomitant]
     Active Substance: IRBESARTAN
     Dates: start: 1990
  15. LANSOPRAZOLE [Concomitant]
     Active Substance: LANSOPRAZOLE
     Dates: start: 20220224
  16. POLYETHYLENE GLYCOLS [Concomitant]
     Active Substance: POLYETHYLENE GLYCOLS
     Dates: start: 20220225
  17. METOCLOPRAMIDE [Concomitant]
     Active Substance: METOCLOPRAMIDE
     Dates: start: 20220225
  18. NEBIVOLOL [Concomitant]
     Active Substance: NEBIVOLOL
     Dates: start: 1990
  19. ACETAMINOPHEN [Concomitant]
     Active Substance: ACETAMINOPHEN
     Dates: start: 20220225
  20. PAROXETINE [Concomitant]
     Active Substance: PAROXETINE
     Dates: start: 20220224
  21. RASBURICASE [Concomitant]
     Active Substance: RASBURICASE
     Dates: start: 20220224, end: 20220224
  22. VALACYCLOVIR HYDROCHLORIDE [Concomitant]
     Active Substance: VALACYCLOVIR HYDROCHLORIDE
     Dates: start: 202105
  23. CILGAVIMAB\TIXAGEVIMAB [Concomitant]
     Active Substance: CILGAVIMAB\TIXAGEVIMAB
     Dates: start: 20220225, end: 20220225
  24. MONTMORILLONITE [Concomitant]
     Active Substance: MONTMORILLONITE
     Dates: start: 20220302, end: 20220306
  25. POTASSIUM CHLORIDE [Concomitant]
     Active Substance: POTASSIUM CHLORIDE
     Dates: start: 20220301, end: 20220313
  26. EPOETIN ZETA [Concomitant]
     Active Substance: ERYTHROPOIETIN
     Dates: start: 20220225, end: 20220718
  27. LACTULOSE [Concomitant]
     Active Substance: LACTULOSE
     Dates: start: 20220226, end: 20220228
  28. MINERAL OIL [Concomitant]
     Active Substance: MINERAL OIL
     Dates: start: 20220227, end: 20220228
  29. METHYLPREDNISOLONE [Concomitant]
     Active Substance: METHYLPREDNISOLONE
     Dates: start: 20220310, end: 20220311
  30. POTASSIUM [Concomitant]
     Active Substance: POTASSIUM
     Dates: start: 20220315, end: 20220315
  31. POTASSIUM CHLORIDE [Concomitant]
     Active Substance: POTASSIUM CHLORIDE
     Dates: start: 20220314, end: 20220323
  32. ALBUTEROL [Concomitant]
     Active Substance: ALBUTEROL
     Dates: start: 20210402
  33. TRAMADOL [Concomitant]
     Active Substance: TRAMADOL
     Dates: start: 20220310

REACTIONS (2)
  - Constipation [Recovered/Resolved]
  - Urinary tract infection bacterial [Recovered/Resolved]

NARRATIVE: CASE EVENT DATE: 20220226
